FAERS Safety Report 5765057-4 (Version None)
Quarter: 2008Q2

REPORT INFORMATION
  Report Type: 
  Country: None (occurrence: None)
  Receive Date: 20080611
  Receipt Date: 20080603
  Transmission Date: 20081010
  Serious: Yes (Hospitalization, Other)
  Sender: FDA-Public Use
  Company Number: FR-BRISTOL-MYERS SQUIBB COMPANY-14071443

PATIENT
  Age: 46 Year
  Sex: Female
  Weight: 68 kg

DRUGS (7)
  1. ORENCIA [Suspect]
     Indication: RHEUMATOID ARTHRITIS
     Dosage: FOURTH INFUSION ON 15-JAN-2008
     Dates: start: 20071119
  2. STALEVO 100 [Suspect]
  3. TRIVASTAL [Suspect]
  4. MODOPAR [Concomitant]
     Dosage: 125 MG IN THE MORNING AND THE EVENING
  5. METHOTREXATE SODIUM [Concomitant]
  6. CORTANCYL [Concomitant]
  7. DAFALGAN [Concomitant]

REACTIONS (5)
  - CHOREOATHETOSIS [None]
  - DRUG INTERACTION [None]
  - DYSKINESIA [None]
  - OVERDOSE [None]
  - PARKINSON'S DISEASE [None]
